FAERS Safety Report 6723363-0 (Version None)
Quarter: 2010Q2

REPORT INFORMATION
  Report Type: 
  Country: None (occurrence: None)
  Receive Date: 20100511
  Receipt Date: 20100414
  Transmission Date: 20101027
  Serious: Yes (Other)
  Sender: FDA-Public Use
  Company Number: JP-SOLVAY-00310001861

PATIENT
  Age: 25 Year
  Sex: Female

DRUGS (4)
  1. LUVOX [Suspect]
     Indication: DEPRESSION
     Dosage: 50 MILLIGRAM(S), ORAL
     Route: 048
     Dates: start: 20100326, end: 20100326
  2. LUVOX [Suspect]
     Indication: DEPRESSION
     Dosage: 50 MILLIGRAM(S), ORAL
     Route: 048
     Dates: start: 20080101
  3. PAXIL [Suspect]
     Indication: DEPRESSION
     Dosage: 40 MILLIGRAM(S), ORAL
     Route: 048
     Dates: start: 20100326, end: 20100326
  4. PAXIL [Suspect]
     Indication: DEPRESSION
     Dosage: 40 MILLIGRAM(S), ORAL
     Route: 048
     Dates: start: 20080101

REACTIONS (3)
  - MULTIPLE DRUG OVERDOSE [None]
  - SUICIDE ATTEMPT [None]
  - UNEVALUABLE EVENT [None]
